FAERS Safety Report 9252449 (Version 2)
Quarter: 2013Q3

REPORT INFORMATION
  Report Type: Report from Study
  Country: AU (occurrence: AU)
  Receive Date: 20130424
  Receipt Date: 20130826
  Transmission Date: 20140515
  Serious: Yes (Other)
  Sender: FDA-Public Use
  Company Number: AU-INCYTE CORPORATION-2013IN000756

PATIENT
  Age: 66 Year
  Sex: Male
  Weight: 83.1 kg

DRUGS (10)
  1. INCB018424 (RUXOLITINIB) [Suspect]
     Indication: MYELOFIBROSIS
     Dosage: 20 MG, BID
     Route: 048
     Dates: start: 20100125
  2. INCB018424 (RUXOLITINIB) [Suspect]
     Dosage: 10 MG, BID
     Route: 048
     Dates: start: 20100324
  3. INCB018424 (RUXOLITINIB) [Suspect]
     Dosage: 15 MG, BID
     Route: 048
     Dates: start: 20100421
  4. INCB018424 (RUXOLITINIB) [Suspect]
     Dosage: 10 MG, BID
     Route: 048
     Dates: start: 20110323
  5. INCB018424 (RUXOLITINIB) [Suspect]
     Dosage: 15 MG, BID
     Route: 048
     Dates: start: 20110614, end: 20111219
  6. INCB018424 (RUXOLITINIB) [Suspect]
     Dosage: 10 MG, BID
     Route: 048
     Dates: start: 20111222, end: 20130415
  7. LATANOPROST [Concomitant]
     Indication: GLAUCOMA
     Dosage: 1 DROP EACH EYE DAILY
     Dates: start: 200902
  8. ASPIRIN [Concomitant]
     Indication: PROPHYLAXIS
     Dosage: 100 MG, QD
     Route: 048
     Dates: start: 1980
  9. VIAGRA [Concomitant]
     Indication: ERECTILE DYSFUNCTION
     Dosage: 50 MG, PRN
     Dates: start: 201007
  10. KENALOG [Concomitant]
     Indication: MOUTH ULCERATION
     Dosage: 1 APP PRN
     Route: 061
     Dates: start: 20111122

REACTIONS (1)
  - Non-Hodgkin^s lymphoma [Not Recovered/Not Resolved]
